FAERS Safety Report 10188285 (Version 1)
Quarter: 2014Q2

REPORT INFORMATION
  Report Type: Spontaneous
  Country: GB (occurrence: GB)
  Receive Date: 20140522
  Receipt Date: 20140522
  Transmission Date: 20141212
  Serious: Yes (Hospitalization)
  Sender: FDA-Public Use
  Company Number: PHHY2014GB060569

PATIENT
  Age: 85 Year
  Sex: Male

DRUGS (14)
  1. FLUOXETINE [Suspect]
     Dosage: 40 MG, QD
     Route: 048
     Dates: end: 20140428
  2. APRACLONIDINE [Concomitant]
  3. ASPIRIN [Concomitant]
  4. CALCICHEW D3 [Concomitant]
  5. CARBOMER [Concomitant]
  6. INSULIN ISOPHANE [Concomitant]
  7. LATANOPROST [Concomitant]
  8. OMEPRAZOLE [Concomitant]
  9. PARACETAMOL [Concomitant]
  10. RIMEXOLONE [Concomitant]
  11. SALBUTAMOL [Concomitant]
  12. SERETIDE [Concomitant]
  13. TEMAZEPAM [Concomitant]
  14. TIOTROPIUM [Concomitant]

REACTIONS (7)
  - Tenderness [Unknown]
  - Constipation [Recovering/Resolving]
  - Sinus bradycardia [Recovering/Resolving]
  - Urinary retention [Recovering/Resolving]
  - Dry mouth [Recovering/Resolving]
  - Dyspnoea [Unknown]
  - Somnolence [Unknown]
